FAERS Safety Report 6471853-0 (Version None)
Quarter: 2009Q4

REPORT INFORMATION
  Report Type: 
  Country: None (occurrence: None)
  Receive Date: 20091203
  Receipt Date: 20080609
  Transmission Date: 20100525
  Serious: Yes (Death, Hospitalization, Other)
  Sender: FDA-Public Use
  Company Number: GB-ELI_LILLY_AND_COMPANY-GB200803004370

PATIENT
  Sex: Male
  Weight: 125 kg

DRUGS (6)
  1. BYETTA [Suspect]
     Indication: DIABETES MELLITUS
     Dosage: 10 UG, 2/D
     Route: 065
     Dates: start: 20070815
  2. METFORMIN HCL [Concomitant]
     Indication: DIABETES MELLITUS
  3. INSULIN [Concomitant]
     Indication: DIABETES MELLITUS
  4. FRUSEMIDE [Concomitant]
  5. NICORANDIL [Concomitant]
  6. ASPIRIN [Concomitant]

REACTIONS (2)
  - ANGINA PECTORIS [None]
  - CARDIAC ARREST [None]
